FAERS Safety Report 18484008 (Version 1)
Quarter: 2020Q4

REPORT INFORMATION
  Report Type: Spontaneous
  Country: AM (occurrence: AM)
  Receive Date: 20201109
  Receipt Date: 20201109
  Transmission Date: 20210114
  Serious: Yes (Other)
  Sender: FDA-Public Use
  Company Number: AM-ROCHE-2707177

PATIENT
  Age: 65 Year
  Sex: Female

DRUGS (8)
  1. HERCEPTIN [Suspect]
     Active Substance: TRASTUZUMAB
     Indication: BREAST CANCER METASTATIC
     Dosage: 6 CYCLES OF HERCEPTIN + LETROZOLE, LOADING DOSE OF HERCEPTIN IS 8 MG/KG
     Route: 041
     Dates: start: 201903
  2. HERCEPTIN [Suspect]
     Active Substance: TRASTUZUMAB
     Dosage: 6 CYCLES OF HERCEPTIN, DOCETAXEL AND ZOLEDRONIC ACID
     Route: 041
  3. ZOLEDRONIC ACID [Suspect]
     Active Substance: ZOLEDRONIC ACID
     Indication: BREAST CANCER METASTATIC
     Dosage: 6 CYCLES OF HERCEPTIN, DOCETAXEL, ZOLEDRONIC ACID
     Route: 065
  4. DOCETAXEL. [Suspect]
     Active Substance: DOCETAXEL
     Indication: BREAST CANCER METASTATIC
     Dosage: 6 CYCLES OF HERCEPTIN, DOCETAXEL, ZOLEDRONIC ACID
     Route: 065
  5. XELODA [Concomitant]
     Active Substance: CAPECITABINE
     Indication: BREAST CANCER METASTATIC
     Route: 048
  6. LETROZOLE. [Suspect]
     Active Substance: LETROZOLE
     Indication: BREAST CANCER METASTATIC
     Dosage: 6 CYCLES OF HERCEPTIN AND LETROZOLE
     Route: 065
     Dates: start: 201903
  7. LAPATINIB [Concomitant]
     Active Substance: LAPATINIB
     Indication: BREAST CANCER METASTATIC
  8. KADCYLA [Suspect]
     Active Substance: ADO-TRASTUZUMAB EMTANSINE
     Indication: BREAST CANCER METASTATIC
     Dosage: MONOTHERAPY
     Route: 042
     Dates: start: 20200226, end: 20200830

REACTIONS (2)
  - Disease progression [Unknown]
  - Spinal fracture [Unknown]

NARRATIVE: CASE EVENT DATE: 202001
